FAERS Safety Report 8989894 (Version 2)
Quarter: 2013Q1

REPORT INFORMATION
  Report Type: Report from Study
  Country: US (occurrence: NL)
  Receive Date: 20121228
  Receipt Date: 20130207
  Transmission Date: 20140127
  Serious: Yes (Death)
  Sender: FDA-Public Use
  Company Number: NL-PFIZER INC-2012326309

PATIENT
  Age: 24 Year
  Sex: Female

DRUGS (1)
  1. IBOGAINE [Suspect]
     Indication: DRUG DETOXIFICATION
     Dosage: 29 MG/KG, UNK
     Dates: start: 1993

REACTIONS (2)
  - Drug interaction [Fatal]
  - Toxicity to various agents [Fatal]
